FAERS Safety Report 4764678-5 (Version None)
Quarter: 2005Q3

REPORT INFORMATION
  Report Type: 
  Country: None (occurrence: None)
  Receive Date: 20050909
  Receipt Date: 20031009
  Transmission Date: 20060218
  Serious: Yes (Hospitalization)
  Sender: FDA-Public Use
  Company Number: US-MERCK-0310USA01302

PATIENT
  Age: 39 Year
  Sex: Female
  Weight: 57 kg

DRUGS (14)
  1. VIOXX [Suspect]
     Indication: OSTEOARTHRITIS
     Route: 048
     Dates: start: 20010101, end: 20010715
  2. VIOXX [Suspect]
     Route: 048
     Dates: start: 20010716, end: 20010101
  3. VIOXX [Suspect]
     Route: 048
     Dates: start: 20020201, end: 20020701
  4. VIOXX [Suspect]
     Indication: PAIN IN EXTREMITY
     Route: 048
     Dates: start: 20010101, end: 20010715
  5. VIOXX [Suspect]
     Route: 048
     Dates: start: 20010716, end: 20010101
  6. VIOXX [Suspect]
     Route: 048
     Dates: start: 20020201, end: 20020701
  7. PAXIL [Concomitant]
     Indication: DEPRESSION
     Route: 065
     Dates: end: 20030901
  8. NEXIUM [Concomitant]
     Indication: GASTROOESOPHAGEAL REFLUX DISEASE
     Route: 065
     Dates: start: 19970101
  9. PREDNISONE [Concomitant]
     Route: 065
  10. ZOVIRAX [Concomitant]
     Route: 065
  11. ZYRTEC [Concomitant]
     Route: 065
  12. TRIMOX [Concomitant]
     Route: 065
  13. CELEBREX [Concomitant]
     Route: 065
  14. PLAVIX [Concomitant]
     Indication: CEREBROVASCULAR ACCIDENT
     Route: 048
     Dates: start: 20001101

REACTIONS (96)
  - ABDOMINAL PAIN UPPER [None]
  - ALOPECIA [None]
  - ANAEMIA [None]
  - ANAEMIA MACROCYTIC [None]
  - ANGINA PECTORIS [None]
  - ANXIETY [None]
  - ASTHENIA [None]
  - BACK INJURY [None]
  - BACK PAIN [None]
  - BALANCE DISORDER [None]
  - BLINDNESS [None]
  - BLOOD CHOLESTEROL INCREASED [None]
  - BLOOD TRIGLYCERIDES INCREASED [None]
  - BRONCHITIS [None]
  - CAROTID ARTERY DISEASE [None]
  - CAROTID ARTERY STENOSIS [None]
  - CEREBRAL INFARCTION [None]
  - CEREBRAL THROMBOSIS [None]
  - CEREBROVASCULAR ACCIDENT [None]
  - CERVICOBRACHIAL SYNDROME [None]
  - CHEST PAIN [None]
  - CHRONIC OBSTRUCTIVE PULMONARY DISEASE [None]
  - COMPRESSION FRACTURE [None]
  - CORONARY ARTERY DISEASE [None]
  - DECREASED APPETITE [None]
  - DEPRESSION [None]
  - DIABETES MELLITUS [None]
  - DISEASE RECURRENCE [None]
  - DIZZINESS [None]
  - DRUG INEFFECTIVE [None]
  - DYSLIPIDAEMIA [None]
  - DYSPNOEA [None]
  - EAR INFECTION [None]
  - ELECTROCARDIOGRAM QT PROLONGED [None]
  - FATIGUE [None]
  - FOLATE DEFICIENCY [None]
  - GASTROOESOPHAGEAL REFLUX DISEASE [None]
  - HAEMATOCHEZIA [None]
  - HAEMATURIA [None]
  - HEADACHE [None]
  - HYPERCHOLESTEROLAEMIA [None]
  - HYPERHIDROSIS [None]
  - HYPERREFLEXIA [None]
  - HYPERTENSION [None]
  - HYPOAESTHESIA [None]
  - HYPOTENSION [None]
  - INCREASED TENDENCY TO BRUISE [None]
  - INSOMNIA [None]
  - JAUNDICE [None]
  - JOINT RANGE OF MOTION DECREASED [None]
  - LOSS OF CONSCIOUSNESS [None]
  - LOW DENSITY LIPOPROTEIN INCREASED [None]
  - LUNG DISORDER [None]
  - MIGRAINE [None]
  - MUSCULAR WEAKNESS [None]
  - MYALGIA [None]
  - MYOFASCIAL PAIN SYNDROME [None]
  - NASAL CONGESTION [None]
  - NASAL SEPTUM DEVIATION [None]
  - NAUSEA [None]
  - NECK PAIN [None]
  - NEOPLASM MALIGNANT [None]
  - NUCLEAR MAGNETIC RESONANCE IMAGING BRAIN ABNORMAL [None]
  - OSTEOPENIA [None]
  - OSTEOPOROSIS [None]
  - PAIN [None]
  - PAIN IN EXTREMITY [None]
  - PARAESTHESIA ORAL [None]
  - PELVIC PAIN [None]
  - PHARYNGOLARYNGEAL PAIN [None]
  - PHONOPHOBIA [None]
  - PHOTOPHOBIA [None]
  - PNEUMONIA [None]
  - PRODUCTIVE COUGH [None]
  - PULMONARY VALVE INCOMPETENCE [None]
  - PYREXIA [None]
  - RASH [None]
  - RED BLOOD CELL SEDIMENTATION RATE INCREASED [None]
  - RHINITIS ALLERGIC [None]
  - SINUS HEADACHE [None]
  - SINUSITIS [None]
  - SLEEP DISORDER [None]
  - SPINAL COMPRESSION FRACTURE [None]
  - SPUTUM DISCOLOURED [None]
  - STRESS [None]
  - SUPRAPUBIC PAIN [None]
  - SYNCOPE [None]
  - TENDONITIS [None]
  - THORACIC OUTLET SYNDROME [None]
  - THROMBOCYTOPENIA [None]
  - TRANSIENT ISCHAEMIC ATTACK [None]
  - TREMOR [None]
  - VISUAL DISTURBANCE [None]
  - VITAMIN B12 DEFICIENCY [None]
  - VOMITING [None]
  - WEIGHT DECREASED [None]
